FAERS Safety Report 7623629-6 (Version None)
Quarter: 2011Q3

REPORT INFORMATION
  Report Type: 
  Country: None (occurrence: None)
  Receive Date: 20110701
  Receipt Date: 20110127
  Transmission Date: 20111222
  Serious: Yes (Hospitalization)
  Sender: FDA-Public Use
  Company Number: 7039018

PATIENT
  Age: 79 Year
  Sex: Female
  Weight: 56 kg

DRUGS (15)
  1. CARDIZEM [Concomitant]
  2. NEXIUM [Concomitant]
  3. VITAMIN D [Concomitant]
  4. ACTONEL [Concomitant]
  5. ADVAIR DISKUS (SERETIDE /01420901/) [Concomitant]
  6. ZOCOR [Concomitant]
  7. AMITRIPTYLINE HCL [Concomitant]
  8. MAXZIDE [Concomitant]
  9. REQUIP [Concomitant]
  10. REBIF [Suspect]
     Indication: MULTIPLE SCLEROSIS
     Dosage: 44 MCG, 3 IN 1 WK, SUBCUTANEOUS
     Route: 058
     Dates: start: 20080721
  11. SYNTHROID [Concomitant]
  12. COMBIVENT [Concomitant]
  13. IRON (IRON) [Concomitant]
  14. POTASSIUM CHLORIDE [Concomitant]
  15. XALATAN [Concomitant]

REACTIONS (7)
  - INJECTION SITE REACTION [None]
  - SENSATION OF HEAVINESS [None]
  - PNEUMONIA [None]
  - PYREXIA [None]
  - CHILLS [None]
  - VOMITING [None]
  - NAUSEA [None]
